FAERS Safety Report 14367997 (Version 1)
Quarter: 2018Q1

REPORT INFORMATION
  Report Type: Spontaneous
  Country: AU (occurrence: AU)
  Receive Date: 20180109
  Receipt Date: 20180109
  Transmission Date: 20180509
  Serious: Yes (Life-Threatening, Hospitalization, Disabling)
  Sender: FDA-Public Use
  Company Number: None

PATIENT
  Sex: Female
  Weight: 65 kg

DRUGS (1)
  1. HYDROCORTISONE. [Suspect]
     Active Substance: HYDROCORTISONE
     Indication: ECZEMA

REACTIONS (19)
  - Rash [None]
  - Asthenia [None]
  - Poor quality sleep [None]
  - Quality of life decreased [None]
  - Drug prescribing error [None]
  - Myalgia [None]
  - Product label issue [None]
  - Drug dependence [None]
  - Bone pain [None]
  - Pain [None]
  - Pruritus [None]
  - Eczema [None]
  - Withdrawal syndrome [None]
  - Gait inability [None]
  - Anxiety [None]
  - Extra dose administered [None]
  - Loss of personal independence in daily activities [None]
  - Feeling of body temperature change [None]
  - Tremor [None]

NARRATIVE: CASE EVENT DATE: 20160106
